FAERS Safety Report 8479232-1 (Version None)
Quarter: 2012Q2

REPORT INFORMATION
  Report Type: 
  Country: None (occurrence: None)
  Receive Date: 20120629
  Receipt Date: 20120620
  Transmission Date: 20120825
  Serious: Yes (Hospitalization)
  Sender: FDA-Public Use
  Company Number: US-GLAXOSMITHKLINE-A0875004A

PATIENT
  Age: 60 Year
  Sex: Male
  Weight: 90.5 kg

DRUGS (10)
  1. METFORMIN HCL [Concomitant]
  2. PRILOSEC [Concomitant]
  3. TRICOR [Concomitant]
  4. LANTUS [Concomitant]
  5. LYRICA [Concomitant]
  6. AVAPRO [Concomitant]
  7. PAXIL [Concomitant]
  8. LOPRESSOR [Concomitant]
  9. AVANDIA [Suspect]
     Indication: TYPE 2 DIABETES MELLITUS
     Dosage: 8MG PER DAY
     Route: 048
     Dates: start: 20000330, end: 20070607
  10. AMARYL [Concomitant]

REACTIONS (6)
  - PERIPHERAL VASCULAR DISORDER [None]
  - CARDIOMYOPATHY [None]
  - PULMONARY EMBOLISM [None]
  - MYOCARDIAL INFARCTION [None]
  - CAROTID ARTERY DISEASE [None]
  - ANGINA PECTORIS [None]
